FAERS Safety Report 18377826 (Version 1)
Quarter: 2020Q4

REPORT INFORMATION
  Report Type: Spontaneous
  Country: US (occurrence: US)
  Receive Date: 20201013
  Receipt Date: 20201013
  Transmission Date: 20210114
  Serious: Yes (Hospitalization)
  Sender: FDA-Public Use
  Company Number: US-PFIZER INC-2020394628

PATIENT
  Age: 30 Year
  Sex: Male

DRUGS (3)
  1. VIAGRA [Suspect]
     Active Substance: SILDENAFIL CITRATE
     Dosage: UNK[WELL THE DOCTOR SAID TO TAKE UP TO 4, I THOUGHT THEY WERE 25 MG AND THEY WERE 100]
  2. MOTRIN [Concomitant]
     Active Substance: IBUPROFEN
     Dosage: UNK
  3. GABAPENTIN. [Concomitant]
     Active Substance: GABAPENTIN
     Indication: NERVE INJURY
     Dosage: UNK

REACTIONS (4)
  - Pain [Unknown]
  - Dysuria [Unknown]
  - Penis disorder [Unknown]
  - Medication error [Unknown]
